FAERS Safety Report 20612034 (Version 2)
Quarter: 2022Q1

REPORT INFORMATION
  Report Type: Spontaneous
  Country: SI (occurrence: SI)
  Receive Date: 20220318
  Receipt Date: 20220328
  Transmission Date: 20220423
  Serious: Yes (Life-Threatening, Other)
  Sender: FDA-Public Use
  Company Number: SI-BIOVITRUM-2022SI03864

PATIENT
  Age: 4 Month
  Sex: Male
  Weight: 3 kg

DRUGS (1)
  1. NITISINONE [Suspect]
     Active Substance: NITISINONE
     Indication: Tyrosinaemia

REACTIONS (6)
  - Hepatic function abnormal [Not Recovered/Not Resolved]
  - Hepatic failure [Not Recovered/Not Resolved]
  - Acute hepatic failure [Unknown]
  - Cytomegalovirus infection reactivation [Unknown]
  - Epstein-Barr virus infection reactivation [Unknown]
  - Liver transplant [Unknown]
